FAERS Safety Report 17982851 (Version 4)
Quarter: 2021Q2

REPORT INFORMATION
  Report Type: Report from Study
  Country: None (occurrence: IL)
  Receive Date: 20200706
  Receipt Date: 20210609
  Transmission Date: 20210717
  Serious: No
  Sender: FDA-Public Use
  Company Number: IL-ABBVIE-20K-082-3351906-00

PATIENT
  Age: 73 Year
  Sex: Female
  Weight: 72 kg

DRUGS (27)
  1. VENCLEXTA [Suspect]
     Active Substance: VENETOCLAX
     Dosage: DOSE INCREASE PER TITRATION SCHEME
     Route: 048
     Dates: start: 20200512, end: 20200518
  2. VENCLEXTA [Suspect]
     Active Substance: VENETOCLAX
     Dosage: DOSE INCREASE PER TITRATION SCHEME
     Route: 048
     Dates: start: 20200519, end: 20200523
  3. OBINUTUZUMAB. [Suspect]
     Active Substance: OBINUTUZUMAB
     Dosage: CYCLE 3
     Route: 065
     Dates: start: 20200422, end: 20200422
  4. ALLOPURINOL. [Concomitant]
     Active Substance: ALLOPURINOL
     Indication: PROPHYLAXIS
     Dates: start: 20101002
  5. COUMADIN [Concomitant]
     Active Substance: WARFARIN SODIUM
     Indication: HEART VALVE REPLACEMENT
     Dates: start: 20081229
  6. SIMVASTATIN. [Concomitant]
     Active Substance: SIMVASTATIN
     Indication: HYPERTENSION
     Dates: start: 20081002
  7. OTRIVIN [Concomitant]
     Active Substance: XYLOMETAZOLINE
     Indication: NASAL CONGESTION
     Dates: start: 20131002
  8. VENCLEXTA [Suspect]
     Active Substance: VENETOCLAX
     Indication: CHRONIC LYMPHOCYTIC LEUKAEMIA
     Route: 048
     Dates: start: 20200224, end: 20200423
  9. VENCLEXTA [Suspect]
     Active Substance: VENETOCLAX
     Dosage: DOSE INCREASED PER TITRATION SCHEME
     Route: 048
     Dates: start: 20200422, end: 20200422
  10. OBINUTUZUMAB. [Suspect]
     Active Substance: OBINUTUZUMAB
     Dosage: CYCLE 2
     Route: 065
     Dates: start: 20200303, end: 20200303
  11. VENCLEXTA [Suspect]
     Active Substance: VENETOCLAX
     Dosage: DOSE CHANGE DUE TO OTHER AE NON HEMATOLOGIC
     Route: 048
     Dates: start: 20200430, end: 20200430
  12. GAZYVA [Suspect]
     Active Substance: OBINUTUZUMAB
     Indication: CHRONIC LYMPHOCYTIC LEUKAEMIA
     Route: 065
     Dates: start: 20200224, end: 20200224
  13. OBINUTUZUMAB. [Suspect]
     Active Substance: OBINUTUZUMAB
     Dosage: CYCLE 5
     Route: 065
     Dates: start: 20200616, end: 20200616
  14. AMLODIPINE [Concomitant]
     Active Substance: AMLODIPINE BESYLATE
     Indication: HYPERTENSION
     Dates: start: 20180213
  15. AUGMENTIN [Concomitant]
     Active Substance: AMOXICILLIN\CLAVULANATE POTASSIUM
     Indication: JOINT INJURY
     Dates: start: 20200308, end: 20200322
  16. VENCLEXTA [Suspect]
     Active Substance: VENETOCLAX
     Dosage: DOSE INCREASE PER TITRATION SCHEME
     Route: 048
     Dates: start: 20200524, end: 20210412
  17. OBINUTUZUMAB. [Suspect]
     Active Substance: OBINUTUZUMAB
     Dosage: CYCLE 5
     Route: 065
     Dates: start: 202007, end: 202007
  18. ELTROXIN [Concomitant]
     Active Substance: LEVOTHYROXINE
     Indication: HYPOTHYROIDISM
     Dates: start: 20090629
  19. SYNTHOMYCINE [Concomitant]
     Indication: JOINT INJURY
     Dates: start: 20200315, end: 20200315
  20. OBINUTUZUMAB. [Suspect]
     Active Substance: OBINUTUZUMAB
     Indication: MONOCLONAL ANTIBODY UNCONJUGATED THERAPY
     Dosage: CYCLE 1
     Route: 065
     Dates: start: 20200224, end: 20200224
  21. OBINUTUZUMAB. [Suspect]
     Active Substance: OBINUTUZUMAB
     Dosage: CYCLE 7
     Route: 065
     Dates: start: 20200811, end: 20200811
  22. CARDILOC [Concomitant]
     Active Substance: BISOPROLOL FUMARATE
     Indication: HYPERTENSION
     Dates: start: 20141124
  23. COVID?19 VACCINE [Concomitant]
     Route: 030
     Dates: start: 20210114, end: 20210114
  24. OBINUTUZUMAB. [Suspect]
     Active Substance: OBINUTUZUMAB
     Dosage: CYCLE 4
     Route: 065
     Dates: start: 20200519, end: 20200519
  25. FUSID [Concomitant]
     Indication: OEDEMA PERIPHERAL
     Route: 048
     Dates: start: 20200310
  26. CIPRODEX [Concomitant]
     Active Substance: CIPROFLOXACIN HYDROCHLORIDE\DEXAMETHASONE
     Indication: JOINT INJURY
     Dates: start: 20200315, end: 20200315
  27. COVID?19 VACCINE [Concomitant]
     Indication: COVID-19 PROPHYLAXIS
     Route: 030
     Dates: start: 20201231, end: 20201231

REACTIONS (9)
  - Dysuria [Not Recovered/Not Resolved]
  - Dyspnoea [Recovered/Resolved]
  - Pulmonary congestion [Recovered/Resolved]
  - Oedema [Recovered/Resolved]
  - Oedema [Not Recovered/Not Resolved]
  - Renal impairment [Not Recovered/Not Resolved]
  - Pyrexia [Recovered/Resolved]
  - Anaemia [Not Recovered/Not Resolved]
  - Gait disturbance [Recovered/Resolved]

NARRATIVE: CASE EVENT DATE: 2020
